FAERS Safety Report 15516353 (Version 1)
Quarter: 2018Q4

REPORT INFORMATION
  Report Type: Spontaneous
  Country: US (occurrence: US)
  Receive Date: 20181011
  Receipt Date: 20181011
  Transmission Date: 20190205
  Serious: No
  Sender: FDA-Public Use
  Company Number: None

PATIENT
  Age: 95 Year
  Sex: Male

DRUGS (1)
  1. ZYTIGA [Suspect]
     Active Substance: ABIRATERONE ACETATE
     Indication: PROSTATE CANCER
     Route: 048
     Dates: start: 20180412, end: 20180925

REACTIONS (5)
  - Blood disorder [None]
  - Therapy cessation [None]
  - Blindness unilateral [None]
  - Vision blurred [None]
  - Drug ineffective [None]

NARRATIVE: CASE EVENT DATE: 20180920
